FAERS Safety Report 4326340-2 (Version None)
Quarter: 2004Q1

REPORT INFORMATION
  Report Type: 
  Country: None (occurrence: None)
  Receive Date: 20040329
  Receipt Date: 20040329
  Transmission Date: 20041129
  Serious: Yes (Disabling)
  Sender: FDA-Public Use
  Company Number: None

PATIENT
  Age: 21 Year
  Sex: Female
  Weight: 52.1637 kg

DRUGS (1)
  1. PAXIL [Suspect]
     Indication: POST-TRAUMATIC STRESS DISORDER
     Dates: start: 20020802, end: 20021022

REACTIONS (15)
  - ABNORMAL BEHAVIOUR [None]
  - ASTHENIA [None]
  - DIARRHOEA [None]
  - FATIGUE [None]
  - FEAR [None]
  - FEELING ABNORMAL [None]
  - HYPERHIDROSIS [None]
  - HYPOAESTHESIA [None]
  - IMPAIRED WORK ABILITY [None]
  - MIGRAINE [None]
  - NAUSEA [None]
  - NERVOUSNESS [None]
  - PANIC ATTACK [None]
  - POST-TRAUMATIC STRESS DISORDER [None]
  - SUICIDAL IDEATION [None]
